FAERS Safety Report 20460803 (Version 1)
Quarter: 2022Q1

REPORT INFORMATION
  Report Type: Report from Study
  Country: US (occurrence: US)
  Receive Date: 20220211
  Receipt Date: 20220211
  Transmission Date: 20220423
  Serious: Yes (Hospitalization)
  Sender: FDA-Public Use
  Company Number: US-JAZZ-2021-US-018800

PATIENT
  Age: 21 Year
  Sex: Male
  Weight: 66.5 kg

DRUGS (12)
  1. ASPARAGINASE ERWINIA CHRYSANTHEMI [Suspect]
     Active Substance: ASPARAGINASE ERWINIA CHRYSANTHEMI
     Indication: Acute lymphocytic leukaemia
     Dosage: 2.1 MILLILITER, 3XWEEKLY PER 2W COURSE
     Route: 042
     Dates: start: 20210503, end: 20210913
  2. ASPARAGINASE ERWINIA CHRYSANTHEMI [Suspect]
     Active Substance: ASPARAGINASE ERWINIA CHRYSANTHEMI
     Dosage: 4.3 MILLILITER, 3XWEEKLY PER 2W COURSE
     Route: 042
     Dates: end: 20211001
  3. DEXAMETHASONE SODIUM PHOSPHATE [Concomitant]
     Active Substance: DEXAMETHASONE SODIUM PHOSPHATE
     Dosage: 20 MILLIGRAM, PREMED
     Route: 042
     Dates: start: 20210929, end: 20211128
  4. GRANISETRON HYDROCHLORIDE [Concomitant]
     Active Substance: GRANISETRON HYDROCHLORIDE
     Dosage: 1 MILLIGRAM, PREMED
     Route: 042
     Dates: start: 20210927, end: 20211126
  5. GRANISETRON HYDROCHLORIDE [Concomitant]
     Active Substance: GRANISETRON HYDROCHLORIDE
     Dosage: 1 MILLIGRAM, AS DIR
     Route: 042
     Dates: start: 20210927, end: 20211012
  6. LORAZEPAM [Concomitant]
     Active Substance: LORAZEPAM
     Dosage: 1 MILLIGRAM, PREMED
     Route: 042
     Dates: start: 20210927, end: 20211012
  7. PROMETHAZINE HYDROCHLORIDE [Concomitant]
     Active Substance: PROMETHAZINE HYDROCHLORIDE
     Dosage: 25 MILLIGRAM, PREMED
     Route: 042
     Dates: start: 20210913, end: 20211112
  8. PROMETHAZINE HYDROCHLORIDE [Concomitant]
     Active Substance: PROMETHAZINE HYDROCHLORIDE
     Dosage: 25 MILLIGRAM, ONCE
     Route: 042
     Dates: start: 20210927, end: 20211012
  9. HEPARIN SODIUM [Concomitant]
     Active Substance: HEPARIN SODIUM
     Dosage: 500 UNITS, AS DIR/P
     Route: 042
     Dates: start: 20210908, end: 20211107
  10. HEPARIN SODIUM [Concomitant]
     Active Substance: HEPARIN SODIUM
     Dosage: 500 UNITS, Q24H / PR
     Route: 042
     Dates: start: 20210908, end: 20211107
  11. HEPARIN SODIUM [Concomitant]
     Active Substance: HEPARIN SODIUM
     Dosage: 500 UNITS, Q 30D / PR
     Route: 042
     Dates: start: 20210908, end: 20211107
  12. SODIUM CHLORIDE [Concomitant]
     Active Substance: SODIUM CHLORIDE
     Dosage: 104.3 MILLILITER, CHEMO
     Route: 042
     Dates: start: 20211001, end: 20211008

REACTIONS (1)
  - Deep vein thrombosis [Not Recovered/Not Resolved]

NARRATIVE: CASE EVENT DATE: 20211004
